FAERS Safety Report 6262824-8 (Version None)
Quarter: 2009Q3

REPORT INFORMATION
  Report Type: 
  Country: None (occurrence: None)
  Receive Date: 20090708
  Receipt Date: 20090626
  Transmission Date: 20100115
  Serious: Yes (Other)
  Sender: FDA-Public Use
  Company Number: TRP_06300_2009

PATIENT
  Sex: Female

DRUGS (2)
  1. RIBASPHERE [Suspect]
     Indication: HEPATITIS C
     Dosage: 1000 MG, DAILY, ORAL
     Route: 048
     Dates: start: 20090424
  2. PEGASYS [Suspect]
     Indication: HEPATITIS C
     Dosage: 180 UG 1X/WEEK, SUBCUTANEOUS
     Route: 058
     Dates: start: 20090424

REACTIONS (12)
  - ASTHENOPIA [None]
  - BLISTER [None]
  - CONDITION AGGRAVATED [None]
  - DRY EYE [None]
  - FATIGUE [None]
  - FLUID INTAKE REDUCED [None]
  - INSOMNIA [None]
  - NAUSEA [None]
  - PLATELET COUNT DECREASED [None]
  - PRURITUS [None]
  - SKIN NODULE [None]
  - WHITE BLOOD CELL COUNT DECREASED [None]
